FAERS Safety Report 7950195-8 (Version None)
Quarter: 2011Q4

REPORT INFORMATION
  Report Type: 
  Country: None (occurrence: None)
  Receive Date: 20111130
  Receipt Date: 20110927
  Transmission Date: 20120403
  Serious: Yes (Hospitalization)
  Sender: FDA-Public Use
  Company Number: PHEH2011US06423

PATIENT
  Age: 71 Year
  Sex: Female
  Weight: 57.143 kg

DRUGS (2)
  1. PROLASTIN [Concomitant]
  2. TOBI [Suspect]
     Indication: BRONCHIECTASIS
     Dosage: 300 MG, BID 14 DAYS ON AND 14 DAYS OFF
     Dates: start: 20090813

REACTIONS (1)
  - DYSPNOEA [None]
